FAERS Safety Report 5170505-7 (Version None)
Quarter: 2006Q4

REPORT INFORMATION
  Report Type: 
  Country: None (occurrence: None)
  Receive Date: 20061204
  Receipt Date: 20061128
  Transmission Date: 20070319
  Serious: Yes (Hospitalization, Other)
  Sender: FDA-Public Use
  Company Number: TCI2006A03890

PATIENT
  Age: 37 Year
  Sex: Female

DRUGS (3)
  1. LEUPROLIDE ACETATE [Suspect]
     Indication: ENDOMETRIOSIS
     Dosage: 1.88 MG (1.88 MG, 1 IN 28 D); SUBCUTANEOUS
     Route: 058
     Dates: start: 20050722, end: 20050819
  2. FERRICON (CIDEFERON) (INJECTION) [Concomitant]
  3. FEREDAIM (FERROUS SODIUM CITRATE) (TABLETS) [Concomitant]

REACTIONS (2)
  - GENITAL HAEMORRHAGE [None]
  - UTERINE CANCER [None]
